FAERS Safety Report 15460851 (Version 5)
Quarter: 2019Q4

REPORT INFORMATION
  Report Type: Report from Study
  Country: US (occurrence: US)
  Receive Date: 20181003
  Receipt Date: 20191105
  Transmission Date: 20200122
  Serious: Yes (Life-Threatening, Other)
  Sender: FDA-Public Use
  Company Number: US-ACTELION-A-NJ2018-179506

PATIENT
  Sex: Male

DRUGS (13)
  1. LORTAB [Concomitant]
     Active Substance: ACETAMINOPHEN\HYDROCODONE BITARTRATE
  2. FUROSEMIDE. [Concomitant]
     Active Substance: FUROSEMIDE
     Route: 048
  3. SPIRONOLACTONE. [Concomitant]
     Active Substance: SPIRONOLACTONE
     Dosage: UNK UNK, QD
  4. BICALUTAMIDE. [Concomitant]
     Active Substance: BICALUTAMIDE
     Dosage: 50 MG, BID
  5. WARFARIN [Concomitant]
     Active Substance: WARFARIN
     Route: 048
  6. ASPIRIN. [Concomitant]
     Active Substance: ASPIRIN
  7. METFORMIN [Concomitant]
     Active Substance: METFORMIN HYDROCHLORIDE
  8. MECLIZINE [Concomitant]
     Active Substance: MECLIZINE HYDROCHLORIDE
  9. SOTALOL. [Concomitant]
     Active Substance: SOTALOL
  10. ATORVASTATIN [Concomitant]
     Active Substance: ATORVASTATIN
  11. LOSARTAN. [Concomitant]
     Active Substance: LOSARTAN
  12. OPSUMIT [Suspect]
     Active Substance: MACITENTAN
     Indication: PULMONARY ARTERIAL HYPERTENSION
     Dosage: 10 MG, QD
     Route: 048
     Dates: start: 20180122
  13. LASIX [Concomitant]
     Active Substance: FUROSEMIDE
     Dosage: UNK, QD

REACTIONS (9)
  - Terminal state [Unknown]
  - Sleep apnoea syndrome [Not Recovered/Not Resolved]
  - Loss of personal independence in daily activities [Unknown]
  - Dyspnoea exertional [Recovered/Resolved]
  - Fall [Unknown]
  - Dyspnoea [Not Recovered/Not Resolved]
  - Decreased interest [Unknown]
  - Prostate cancer metastatic [Unknown]
  - Emotional disorder [Unknown]
